FAERS Safety Report 5834446-1 (Version None)
Quarter: 2008Q3

REPORT INFORMATION
  Report Type: 
  Country: None (occurrence: None)
  Receive Date: 20080805
  Receipt Date: 20080802
  Transmission Date: 20090109
  Serious: Yes (Life-Threatening)
  Sender: FDA-Public Use
  Company Number: US-BOEHRINGER INGELHEIM GMBH, GERMANY-2008-BP-12186BP

PATIENT
  Sex: Male

DRUGS (2)
  1. ZANTAC [Suspect]
     Indication: CHEST PAIN
     Route: 048
     Dates: start: 20080802
  2. ZANTAC [Suspect]
     Indication: PAIN IN EXTREMITY

REACTIONS (3)
  - CHEST PAIN [None]
  - PAIN IN EXTREMITY [None]
  - THERAPEUTIC PRODUCT INEFFECTIVE FOR UNAPPROVED INDICATION [None]
